FAERS Safety Report 9751342 (Version 1)
Quarter: 2013Q4

REPORT INFORMATION
  Report Type: Spontaneous
  Country: US (occurrence: US)
  Receive Date: 20131212
  Receipt Date: 20131212
  Transmission Date: 20140711
  Serious: No
  Sender: FDA-Public Use
  Company Number: US-BIOGENIDEC-2013BI089838

PATIENT
  Sex: Female
  Weight: 67 kg

DRUGS (9)
  1. TECFIDERA [Suspect]
     Indication: PRODUCT USED FOR UNKNOWN INDICATION
     Route: 048
  2. TECFIDERA [Suspect]
     Indication: PRODUCT USED FOR UNKNOWN INDICATION
     Route: 048
  3. XANAX [Concomitant]
  4. SOLU MEDROL [Concomitant]
  5. NASONEX SPR [Concomitant]
  6. GABAPENTIN [Concomitant]
  7. LOSARTAN [Concomitant]
  8. NAPROXEN SOD CR [Concomitant]
  9. NUVIGIL [Concomitant]

REACTIONS (3)
  - Abdominal discomfort [Unknown]
  - Nausea [Unknown]
  - Flushing [Unknown]
